FAERS Safety Report 6227520-1 (Version None)
Quarter: 2009Q2

REPORT INFORMATION
  Report Type: 
  Country: None (occurrence: None)
  Receive Date: 20090612
  Receipt Date: 20090603
  Transmission Date: 20091009
  Serious: Yes (Other)
  Sender: FDA-Public Use
  Company Number: GB-ASTRAZENECA-2009GB01314

PATIENT
  Age: 41 Year
  Sex: Male

DRUGS (6)
  1. SEROQUEL XR [Suspect]
     Route: 048
  2. HALOPERIDOL [Concomitant]
  3. OLANZAPINE [Concomitant]
  4. RISPERIDONE [Concomitant]
  5. LITHIUM [Concomitant]
     Dosage: 1000 MG
  6. DEPAKOTE [Concomitant]
     Dosage: 1500 MG

REACTIONS (1)
  - VISUAL IMPAIRMENT [None]
